FAERS Safety Report 6086190-6 (Version None)
Quarter: 2009Q1

REPORT INFORMATION
  Report Type: 
  Country: None (occurrence: None)
  Receive Date: 20090220
  Receipt Date: 20090210
  Transmission Date: 20090719
  Serious: Yes (Other)
  Sender: FDA-Public Use
  Company Number: PR-BAXTER-2009BH002302

PATIENT
  Age: 30 Year
  Sex: Female
  Weight: 54 kg

DRUGS (1)
  1. HEPARIN SODIUM INJECTION [Suspect]
     Indication: PULMONARY EMBOLISM
     Route: 058
     Dates: start: 20071117

REACTIONS (14)
  - ABDOMINAL PAIN [None]
  - BURNING SENSATION [None]
  - DYSPNOEA [None]
  - HEART RATE IRREGULAR [None]
  - HYPERSENSITIVITY [None]
  - MENTAL IMPAIRMENT [None]
  - NAUSEA [None]
  - PALPITATIONS [None]
  - PANIC DISORDER [None]
  - RASH GENERALISED [None]
  - TREMOR [None]
  - URTICARIA [None]
  - VISION BLURRED [None]
  - VOMITING [None]
